FAERS Safety Report 5216873-9 (Version None)
Quarter: 2007Q1

REPORT INFORMATION
  Report Type: 
  Country: None (occurrence: None)
  Receive Date: 20070119
  Receipt Date: 20070104
  Transmission Date: 20070707
  Serious: Yes (Other)
  Sender: FDA-Public Use
  Company Number: 2006-152153-NL

PATIENT
  Age: 38 Year
  Sex: Female
  Weight: 65.8 kg

DRUGS (4)
  1. NUVARING [Suspect]
     Indication: CONTRACEPTION
     Dosage: VAGINAL, 3 WEEKS IN/1 WEEK OUT
     Route: 067
     Dates: start: 20060101
  2. NUVARING [Suspect]
     Indication: MENSTRUATION IRREGULAR
     Dosage: VAGINAL, 3 WEEKS IN/1 WEEK OUT
     Route: 067
     Dates: start: 20060101
  3. SYNTHROID [Concomitant]
  4. THYROID TAB [Concomitant]

REACTIONS (3)
  - ANTINUCLEAR ANTIBODY INCREASED [None]
  - ARTHRITIS [None]
  - INTERVERTEBRAL DISC COMPRESSION [None]
